FAERS Safety Report 7764745-8 (Version None)
Quarter: 2011Q3

REPORT INFORMATION
  Report Type: 
  Country: None (occurrence: None)
  Receive Date: 20110916
  Receipt Date: 20110906
  Transmission Date: 20111222
  Serious: Yes (Life-Threatening)
  Sender: FDA-Public Use
  Company Number: LTI2011A00126

PATIENT
  Age: 66 Year
  Sex: Male

DRUGS (4)
  1. INERGY (SIMVASTATIN, EZETIMIBE) [Concomitant]
  2. ACTOPLUS MET [Suspect]
     Indication: TYPE 2 DIABETES MELLITUS
     Dosage: 2 TAB (1 TAB., 2 IN 1 D)
     Route: 048
     Dates: start: 20101018
  3. AXELER (OLMESARTAN MEDOXOMIL, AMLODIPIN) [Concomitant]
  4. DIAMICRON (GLICLAZIDE) [Concomitant]

REACTIONS (1)
  - BLADDER TRANSITIONAL CELL CARCINOMA [None]
